FAERS Safety Report 11439552 (Version 1)
Quarter: 2015Q3

REPORT INFORMATION
  Report Type: Spontaneous
  Country: US (occurrence: US)
  Receive Date: 20150901
  Receipt Date: 20150901
  Transmission Date: 20151125
  Serious: No
  Sender: FDA-Public Use
  Company Number: US-ROCHE-1083405

PATIENT
  Age: 48 Year
  Sex: Female

DRUGS (7)
  1. TELAPREVIR [Suspect]
     Active Substance: TELAPREVIR
     Indication: CHRONIC HEPATITIS C
     Route: 065
     Dates: start: 20120510
  2. PEGASYS [Suspect]
     Active Substance: PEGINTERFERON ALFA-2A
     Indication: CHRONIC HEPATITIS C
     Route: 065
     Dates: start: 20120510
  3. TYLENOL [Concomitant]
     Active Substance: ACETAMINOPHEN
  4. COPEGUS [Suspect]
     Active Substance: RIBAVIRIN
     Route: 065
     Dates: start: 20120629
  5. COPEGUS [Suspect]
     Active Substance: RIBAVIRIN
     Indication: CHRONIC HEPATITIS C
     Route: 065
     Dates: start: 20120510
  6. KEFLEX [Concomitant]
     Active Substance: CEPHALEXIN
     Indication: SKIN ULCER
  7. KEFLEX [Concomitant]
     Active Substance: CEPHALEXIN
     Indication: PRURITUS

REACTIONS (9)
  - Pain [Unknown]
  - Skin fissures [Unknown]
  - Gastric disorder [Unknown]
  - Skin ulcer [Unknown]
  - Skin disorder [Unknown]
  - Dyspnoea [Unknown]
  - Pyrexia [Unknown]
  - Vomiting [Unknown]
  - Pruritus [Unknown]

NARRATIVE: CASE EVENT DATE: 20120629
